FAERS Safety Report 6315264-7 (Version None)
Quarter: 2009Q3

REPORT INFORMATION
  Report Type: 
  Country: None (occurrence: None)
  Receive Date: 20090819
  Receipt Date: 20090814
  Transmission Date: 20100115
  Serious: Yes (Death, Hospitalization)
  Sender: FDA-Public Use
  Company Number: PHHY2009MX34500

PATIENT
  Age: 86 Year
  Sex: Male

DRUGS (1)
  1. ZELMAC [Suspect]
     Indication: IRRITABLE BOWEL SYNDROME
     Dosage: 6 MG, 2 DF/DAY
     Route: 048
     Dates: start: 20080201

REACTIONS (3)
  - CONDITION AGGRAVATED [None]
  - DEATH [None]
  - ENDOSCOPY [None]
